FAERS Safety Report 5775374-X (Version None)
Quarter: 2008Q2

REPORT INFORMATION
  Report Type: 
  Country: None (occurrence: None)
  Receive Date: 20080617
  Receipt Date: 20080606
  Transmission Date: 20081010
  Serious: Yes (Hospitalization)
  Sender: FDA-Public Use
  Company Number: US-MERCK-0805USA05585

PATIENT
  Age: 71 Year
  Sex: Female

DRUGS (4)
  1. FOSAMAX [Suspect]
     Indication: OSTEOPOROSIS
     Route: 048
     Dates: start: 20021025, end: 20080101
  2. JANUVIA [Concomitant]
     Route: 048
  3. PRANDIN [Concomitant]
     Route: 065
  4. METFORMIN [Concomitant]
     Route: 065

REACTIONS (7)
  - ATRIAL FIBRILLATION [None]
  - CONGESTIVE CARDIOMYOPATHY [None]
  - HEART RATE INCREASED [None]
  - LUNG DISORDER [None]
  - NASOPHARYNGITIS [None]
  - SICK SINUS SYNDROME [None]
  - SINUS ARRHYTHMIA [None]
